FAERS Safety Report 6617515-8 (Version None)
Quarter: 2010Q1

REPORT INFORMATION
  Report Type: 
  Country: None (occurrence: None)
  Receive Date: 20100302
  Receipt Date: 20100219
  Transmission Date: 20100710
  Serious: Yes (Hospitalization, Other)
  Sender: FDA-Public Use
  Company Number: 20108266

PATIENT
  Age: 33 Year
  Sex: Female

DRUGS (8)
  1. LIORESAL [Suspect]
     Indication: MUSCLE SPASTICITY
     Dosage: MCG, DAILY, INTRATHECAL
     Route: 037
  2. MVP [Concomitant]
  3. SYNTHROID [Concomitant]
  4. LACTULOLSE [Concomitant]
  5. MIRALAX [Concomitant]
  6. METAMUCIL-2 [Concomitant]
  7. CALCIUM CARBONATE [Concomitant]
  8. COLACE [Concomitant]

REACTIONS (5)
  - CELLULITIS [None]
  - CONVULSION [None]
  - IMPLANT SITE ABSCESS [None]
  - SKIN DISORDER [None]
  - SKIN EROSION [None]
